FAERS Safety Report 5945454-4 (Version None)
Quarter: 2008Q4

REPORT INFORMATION
  Report Type: 
  Country: None (occurrence: None)
  Receive Date: 20081107
  Receipt Date: 20081027
  Transmission Date: 20090506
  Serious: Yes (Other)
  Sender: FDA-Public Use
  Company Number: JP-PFIZER INC-2008088401

PATIENT
  Sex: Female
  Weight: 50 kg

DRUGS (3)
  1. ZITHROMAX [Suspect]
     Indication: ACUTE SINUSITIS
     Route: 048
     Dates: start: 20081010, end: 20081012
  2. ZITHROMAX [Suspect]
  3. ROCEPHIN [Suspect]
     Indication: ACUTE SINUSITIS
     Route: 042
     Dates: start: 20081010, end: 20081010

REACTIONS (2)
  - OCULOMUCOCUTANEOUS SYNDROME [None]
  - URTICARIA [None]
